FAERS Safety Report 5661085-8 (Version None)
Quarter: 2008Q1

REPORT INFORMATION
  Report Type: 
  Country: None (occurrence: None)
  Receive Date: 20080304
  Receipt Date: 20080223
  Transmission Date: 20080703
  Serious: Yes (Other)
  Sender: FDA-Public Use
  Company Number: CHPA2008US03389

PATIENT
  Age: 21 Year
  Sex: Male
  Weight: 86.2 kg

DRUGS (1)
  1. THERAFLU COLD AND SORE THROAT [Suspect]
     Indication: COUGH
     Dosage: 2 DF, IN 6 HOURS, ORAL
     Route: 048
     Dates: start: 20080222

REACTIONS (1)
  - HAEMATEMESIS [None]
